FAERS Safety Report 5962925-5 (Version None)
Quarter: 2008Q4

REPORT INFORMATION
  Report Type: 
  Country: None (occurrence: None)
  Receive Date: 20081120
  Receipt Date: 20081112
  Transmission Date: 20090506
  Serious: Yes (Hospitalization)
  Sender: FDA-Public Use
  Company Number: TPA2008A02022

PATIENT
  Age: 74 Year
  Sex: Male
  Weight: 111.1313 kg

DRUGS (8)
  1. ACTOS [Suspect]
     Indication: TYPE 2 DIABETES MELLITUS
     Dosage: 45 MG, 1 IN 1 D, PER ORAL
     Route: 048
     Dates: end: 20081106
  2. ZOCOR [Concomitant]
  3. VYTORIN [Concomitant]
  4. COZAAR [Concomitant]
  5. SPIRONOLACTONE [Concomitant]
  6. AMARYL [Concomitant]
  7. ATENOLOL [Concomitant]
  8. NITROGLYCERIN [Concomitant]

REACTIONS (5)
  - CARDIAC DISORDER [None]
  - EMPHYSEMA [None]
  - FLUID RETENTION [None]
  - STRESS [None]
  - WEIGHT INCREASED [None]
